FAERS Safety Report 9500804 (Version 1)
Quarter: 2013Q1

REPORT INFORMATION
  Report Type: Spontaneous
  Country: US (occurrence: None)
  Receive Date: 20130107
  Receipt Date: 20130107
  Transmission Date: 20140127
  Serious: No
  Sender: FDA-Public Use
  Company Number: PHEH2012US017469

PATIENT
  Age: 39 Year
  Sex: Female

DRUGS (6)
  1. GILENYA [Suspect]
     Indication: RELAPSING-REMITTING MULTIPLE SCLEROSIS
     Route: 048
     Dates: start: 20111031
  2. CYMBALTA (DULOXETINE HYDROCHLORIDE) [Concomitant]
  3. PLAQUENIL (HYDROXYCHLOROQUINE SULFATE) [Concomitant]
  4. AMBIEN (ZOLPIDEM TARTRATE) [Concomitant]
  5. VITAMIN D (ERGOCALCIFEROL) [Concomitant]
  6. MINOCYCLINE (MINOCYCLINE) [Concomitant]

REACTIONS (2)
  - Nausea [None]
  - Abdominal pain [None]
